FAERS Safety Report 17283482 (Version 1)
Quarter: 2020Q1

REPORT INFORMATION
  Report Type: Spontaneous
  Country: US (occurrence: US)
  Receive Date: 20200117
  Receipt Date: 20200117
  Transmission Date: 20200409
  Serious: Yes (Other)
  Sender: FDA-Public Use
  Company Number: US-ELI_LILLY_AND_COMPANY-US202001006827

PATIENT
  Age: 57 Year
  Sex: Male

DRUGS (2)
  1. HUMULIN 70/30 [Suspect]
     Active Substance: INSULIN HUMAN
     Dosage: 10 U, EACH EVENING (AT NIGHT)
     Route: 058
     Dates: start: 201911
  2. HUMULIN 70/30 [Suspect]
     Active Substance: INSULIN HUMAN
     Indication: BLOOD GLUCOSE INCREASED
     Dosage: 15 U, EACH MORNING
     Route: 058
     Dates: start: 201911

REACTIONS (3)
  - Abdominal pain upper [Unknown]
  - Blood glucose increased [Unknown]
  - Pancreatic carcinoma stage IV [Not Recovered/Not Resolved]
